FAERS Safety Report 6214978-7 (Version None)
Quarter: 2009Q2

REPORT INFORMATION
  Report Type: 
  Country: None (occurrence: None)
  Receive Date: 20090604
  Receipt Date: 20080401
  Transmission Date: 20091009
  Serious: No
  Sender: FDA-Public Use
  Company Number: US-ASTRAZENECA-2008UW06550

PATIENT
  Sex: Female

DRUGS (1)
  1. OMEPRAZOLE [Suspect]
     Route: 048
     Dates: start: 20060801, end: 20080301

REACTIONS (4)
  - ANXIETY [None]
  - DEPRESSION [None]
  - MOOD ALTERED [None]
  - RESTLESS LEGS SYNDROME [None]
